FAERS Safety Report 9373559 (Version 2)
Quarter: 2013Q3

REPORT INFORMATION
  Report Type: Spontaneous
  Country: US (occurrence: US)
  Receive Date: 20130627
  Receipt Date: 20130813
  Transmission Date: 20140515
  Serious: No
  Sender: FDA-Public Use
  Company Number: US-TEVA-415150USA

PATIENT
  Age: 69 Year
  Sex: Female
  Weight: 52.21 kg

DRUGS (5)
  1. AZILECT [Suspect]
     Dates: start: 20130214, end: 20130418
  2. SIMVASTATIN [Concomitant]
     Indication: HYPERCHOLESTEROLAEMIA
     Dosage: 10 MILLIGRAM DAILY;
     Route: 048
  3. PRILOSEC [Concomitant]
  4. VITAMINS [Concomitant]
     Indication: MEDICAL DIET
  5. DIAZEPAM [Concomitant]
     Indication: INSOMNIA
     Dosage: PRN

REACTIONS (5)
  - Heart rate increased [Recovered/Resolved]
  - Headache [Recovered/Resolved]
  - Dizziness [Recovered/Resolved]
  - Musculoskeletal stiffness [Recovered/Resolved]
  - Blood pressure increased [Unknown]
